FAERS Safety Report 10146346 (Version 1)
Quarter: 2014Q2

REPORT INFORMATION
  Report Type: Spontaneous
  Country: US (occurrence: None)
  Receive Date: 20140430
  Receipt Date: 20140430
  Transmission Date: 20141212
  Serious: Yes (Hospitalization)
  Sender: FDA-Public Use
  Company Number: None

PATIENT
  Age: 29 Year
  Sex: Female

DRUGS (8)
  1. VANCOMYCIN [Suspect]
     Indication: CELLULITIS
     Dosage: 2000MG, EVERY 12 HOURS, IV ?
     Route: 042
     Dates: start: 20130906, end: 20130909
  2. ALBUTEROL/IPRATROPIUM [Concomitant]
  3. DAPTOMYCIN [Concomitant]
  4. DOCUSATE [Concomitant]
  5. ENOXAPARIN [Concomitant]
  6. HYDROMORPHONE [Concomitant]
  7. POLYETHYLENE GLYCOL 3350 [Concomitant]
  8. TEMAZEPAM [Concomitant]

REACTIONS (2)
  - Rash [None]
  - Eosinophilia [None]
